FAERS Safety Report 8133715-2 (Version None)
Quarter: 2012Q1

REPORT INFORMATION
  Report Type: 
  Country: None (occurrence: None)
  Receive Date: 20120213
  Receipt Date: 20120210
  Transmission Date: 20120608
  Serious: Yes (Death, Other)
  Sender: FDA-Public Use
  Company Number: DE-B.I. PHARMACEUTICALS,INC./RIDGEFIELD-2012-DE-00432DE

PATIENT
  Sex: Male
  Weight: 71 kg

DRUGS (3)
  1. PRADAXA [Suspect]
     Indication: PULMONARY EMBOLISM
  2. PRADAXA [Suspect]
     Indication: VENOUS THROMBOSIS
  3. PRADAXA [Suspect]
     Indication: ATRIAL FIBRILLATION
     Dosage: 300 MG
     Route: 048
     Dates: start: 20110915, end: 20111011

REACTIONS (3)
  - CARDIAC FAILURE [None]
  - HAEMATURIA [None]
  - RENAL FAILURE CHRONIC [None]
